FAERS Safety Report 5243439-7 (Version None)
Quarter: 2007Q1

REPORT INFORMATION
  Report Type: 
  Country: None (occurrence: None)
  Receive Date: 20070214
  Receipt Date: 20070129
  Transmission Date: 20070707
  Serious: Yes (Other)
  Sender: FDA-Public Use
  Company Number: 100#01#2006-02822

PATIENT
  Age: 51 Year
  Sex: Female

DRUGS (4)
  1. AZITHROMYCIN [Suspect]
     Indication: BRONCHITIS
     Dosage: 500 MG
     Route: 042
     Dates: start: 20060210, end: 20060211
  2. AZITHROMYCIN [Suspect]
     Indication: LARYNGOTRACHEITIS
     Dosage: 500 MG
     Route: 042
     Dates: start: 20060210, end: 20060211
  3. CEFOTAXIM (CEFOTAXIME) (CEFOTAXIME) [Concomitant]
  4. METROGIL (MIETRONIDAZOLE) (METRONIDAZOLE) [Concomitant]

REACTIONS (5)
  - BLOOD PRESSURE INCREASED [None]
  - CHOKING SENSATION [None]
  - DYSPNOEA [None]
  - FEELING HOT [None]
  - TACHYCARDIA [None]
